FAERS Safety Report 7753974-5 (Version None)
Quarter: 2011Q3

REPORT INFORMATION
  Report Type: 
  Country: None (occurrence: None)
  Receive Date: 20110915
  Receipt Date: 20110906
  Transmission Date: 20111222
  Serious: Yes (Death)
  Sender: FDA-Public Use
  Company Number: DE-ACTELION-A-US2011-53601

PATIENT
  Sex: Male

DRUGS (3)
  1. VENTAVIS [Suspect]
     Indication: PULMONARY ARTERIAL HYPERTENSION
     Dosage: 5 UG, Q4HRS
     Route: 055
     Dates: start: 20100705
  2. AMBRISENTAN [Concomitant]
  3. SILDENAFIL CITRATE [Concomitant]

REACTIONS (1)
  - DEATH [None]
